FAERS Safety Report 24595164 (Version 1)
Quarter: 2024Q4

REPORT INFORMATION
  Report Type: Spontaneous
  Country: US (occurrence: US)
  Receive Date: 20241108
  Receipt Date: 20241108
  Transmission Date: 20250115
  Serious: Yes (Death, Life-Threatening, Hospitalization)
  Sender: IOVANCE BIOTHERAPEUTICS
  Company Number: US-IOVANCE BIOTHERAPEUTICS, INC-2024IOV000097

PATIENT

DRUGS (4)
  1. AMTAGVI [Suspect]
     Active Substance: LIFILEUCEL
     Indication: Metastatic malignant melanoma
     Dosage: UNK
     Route: 042
     Dates: start: 20241021, end: 20241021
  2. CYCLOPHOSPHAMIDE [Suspect]
     Active Substance: CYCLOPHOSPHAMIDE
     Indication: Lymphodepletion
     Dosage: 750 MG/M2
     Route: 042
     Dates: start: 20241011, end: 20241013
  3. FLUDARABINE [Suspect]
     Active Substance: FLUDARABINE PHOSPHATE
     Indication: Lymphodepletion
     Dosage: 30 MG/M2
     Route: 042
     Dates: start: 20241011, end: 20241013
  4. PIPERACILLIN AND TAZOBACTAM [Concomitant]
     Active Substance: PIPERACILLIN SODIUM\TAZOBACTAM SODIUM
     Indication: Evidence based treatment
     Route: 042

REACTIONS (3)
  - Anaphylactic reaction [Fatal]
  - Cardiotoxicity [Unknown]
  - Bloody discharge [Unknown]

NARRATIVE: CASE EVENT DATE: 20241001
